FAERS Safety Report 10108996 (Version 1)
Quarter: 2014Q2

REPORT INFORMATION
  Report Type: Spontaneous
  Country: DE (occurrence: DE)
  Receive Date: 20140425
  Receipt Date: 20140425
  Transmission Date: 20141212
  Serious: Yes (Life-Threatening, Hospitalization)
  Sender: FDA-Public Use
  Company Number: DE-SUN PHARMACEUTICAL INDUSTRIES LTD-2014SUN00881

PATIENT
  Age: 62 Year
  Sex: Female

DRUGS (7)
  1. OLANZAPINE 5 MG TABLET [Suspect]
     Indication: BIPOLAR DISORDER
     Dosage: 40 MG, UNK
     Route: 065
  2. OLANZAPINE 5 MG TABLET [Suspect]
     Dosage: REDUCED DOSE, UNK
     Route: 065
  3. AMISULPRIDE [Suspect]
     Indication: BIPOLAR DISORDER
     Dosage: 1600 MG, UNK
     Route: 065
  4. AMISULPRIDE [Suspect]
     Dosage: REDUCED DOSE, UNK
     Route: 065
  5. BIPERIDEN [Suspect]
     Indication: BIPOLAR DISORDER
     Dosage: 4 MG, UNK
     Route: 065
  6. BENPERIDOL [Suspect]
     Indication: BIPOLAR DISORDER
     Dosage: 68 MG, UNK
  7. LITHIUM CARBONATE [Suspect]
     Indication: BIPOLAR DISORDER
     Dosage: 675 MG, UNK
     Route: 065

REACTIONS (4)
  - Torsade de pointes [Recovering/Resolving]
  - Electrocardiogram QT prolonged [Recovered/Resolved]
  - Ventricular fibrillation [Recovering/Resolving]
  - Ventricular tachycardia [Recovering/Resolving]
